FAERS Safety Report 9015380 (Version 1)
Quarter: 2013Q1

REPORT INFORMATION
  Report Type: Spontaneous
  Country: US (occurrence: US)
  Receive Date: 20130116
  Receipt Date: 20130116
  Transmission Date: 20140127
  Serious: Yes (Hospitalization)
  Sender: FDA-Public Use
  Company Number: US-BAYER-2013-004473

PATIENT
  Age: 33 Year
  Sex: Female
  Weight: 94.33 kg

DRUGS (15)
  1. OCELLA [Suspect]
  2. FEXOFENADINE [Concomitant]
     Dosage: 180 MG, DAILY
     Route: 048
     Dates: start: 20110104, end: 20110606
  3. ETODOLAC [Concomitant]
     Dosage: 400 MG, UNK
     Dates: start: 20110202
  4. CHLORHEXIDINE [Concomitant]
     Dosage: UNK
     Dates: start: 20110202
  5. HYDROCODONE W/ACETAMINOPHEN [Concomitant]
     Dosage: 7.5-750
     Dates: start: 20110202, end: 20110407
  6. HYDROCHLOROTHIAZIDE [Concomitant]
     Indication: OEDEMA PERIPHERAL
     Dosage: 12.5 MG, BID
     Route: 048
     Dates: start: 20110404
  7. HYDROCHLOROTHIAZIDE [Concomitant]
     Indication: OEDEMA PERIPHERAL
     Dosage: UNK
     Dates: start: 20110610
  8. VITAMIN D3 [Concomitant]
     Dosage: 2 CAPSULES DAILY
     Route: 048
     Dates: start: 20110420
  9. METFORMIN [Concomitant]
     Dosage: 500 MG, BID
     Route: 048
     Dates: start: 20110420, end: 20111227
  10. NASONEX [Concomitant]
     Dosage: 50 ?G, TWO SPRAYS EACH NOSTRIL DAILY
     Route: 045
     Dates: start: 20110420
  11. NASONEX [Concomitant]
     Dosage: UNK
     Dates: start: 20111228
  12. MULTIVITAMIN [Concomitant]
     Dosage: UNK
     Dates: start: 20110420
  13. XANAX [Concomitant]
     Indication: ANXIETY
  14. VICODIN [Concomitant]
     Indication: PAIN
  15. COUMADIN [Concomitant]
     Indication: PULMONARY EMBOLISM

REACTIONS (3)
  - Pulmonary embolism [None]
  - Pancreatitis [None]
  - Cholecystitis [None]
